FAERS Safety Report 17046705 (Version 5)
Quarter: 2020Q3

REPORT INFORMATION
  Report Type: Report from Study
  Country: US (occurrence: US)
  Receive Date: 20191119
  Receipt Date: 20200821
  Transmission Date: 20201102
  Serious: Yes (Death, Other)
  Sender: FDA-Public Use
  Company Number: US-UCBSA-2019047558

PATIENT
  Age: 0 Year

DRUGS (2)
  1. LEVETIRACETAM. [Suspect]
     Active Substance: LEVETIRACETAM
     Indication: EPILEPSY
     Dosage: 3000 MILLIGRAM, ONCE DAILY (QD)
     Route: 064
     Dates: start: 201812, end: 20190614
  2. LAMOTRIGINE. [Concomitant]
     Active Substance: LAMOTRIGINE
     Indication: EPILEPSY
     Dosage: UNK
     Route: 064

REACTIONS (7)
  - Foetal growth restriction [Fatal]
  - Low birth weight baby [Unknown]
  - Maternal exposure before pregnancy [Unknown]
  - Hydrops foetalis [Fatal]
  - Premature baby [Unknown]
  - Foetal distress syndrome [Unknown]
  - Small for dates baby [Unknown]

NARRATIVE: CASE EVENT DATE: 201812
